FAERS Safety Report 25797926 (Version 2)
Quarter: 2025Q3

REPORT INFORMATION
  Report Type: Spontaneous
  Country: EU (occurrence: EU)
  Receive Date: 20250912
  Receipt Date: 20250916
  Transmission Date: 20251021
  Serious: Yes (Hospitalization, Other)
  Sender: REGENERON
  Company Number: EU-REGENERON PHARMACEUTICALS, INC.-2025-144424

PATIENT
  Age: 31 Year
  Sex: Female

DRUGS (1)
  1. LIBTAYO [Suspect]
     Active Substance: CEMIPLIMAB-RWLC
     Indication: Cervix carcinoma

REACTIONS (5)
  - Hypothyroidism [Unknown]
  - Serositis [Unknown]
  - Fluid retention [Unknown]
  - Platelet count decreased [Unknown]
  - Pancytopenia [Unknown]
